FAERS Safety Report 17482975 (Version 1)
Quarter: 2020Q1

REPORT INFORMATION
  Report Type: Spontaneous
  Country: US (occurrence: US)
  Receive Date: 20200228
  Receipt Date: 20200228
  Transmission Date: 20200409
  Serious: No
  Sender: FDA-Public Use
  Company Number: None

PATIENT
  Age: 6 Year
  Sex: Female
  Weight: 20.7 kg

DRUGS (1)
  1. OSELTAMIVIR [Suspect]
     Active Substance: OSELTAMIVIR
     Indication: INFLUENZA
     Route: 048
     Dates: start: 20200224, end: 20200228

REACTIONS (4)
  - Hallucination [None]
  - Vomiting [None]
  - Neuropsychiatric symptoms [None]
  - Nausea [None]

NARRATIVE: CASE EVENT DATE: 20200227
